FAERS Safety Report 6990700-1 (Version None)
Quarter: 2010Q3

REPORT INFORMATION
  Report Type: 
  Country: None (occurrence: None)
  Receive Date: 20100916
  Receipt Date: 20100720
  Transmission Date: 20110219
  Serious: Yes (Other)
  Sender: FDA-Public Use
  Company Number: JP-PFIZER INC-2010085582

PATIENT
  Age: 74 Year
  Sex: Female

DRUGS (2)
  1. LYRICA [Suspect]
     Dosage: 150 MG, DAILY
     Route: 048
     Dates: start: 20100701, end: 20100701
  2. HYDROXYZINE PAMOATE [Concomitant]
     Dosage: 1 DF, UNK
     Route: 048

REACTIONS (2)
  - LOSS OF CONSCIOUSNESS [None]
  - SOMNOLENCE [None]
